FAERS Safety Report 19142410 (Version 1)
Quarter: 2021Q2

REPORT INFORMATION
  Report Type: Spontaneous
  Country: US (occurrence: US)
  Receive Date: 20210416
  Receipt Date: 20210416
  Transmission Date: 20210717
  Serious: Yes (Hospitalization, Other)
  Sender: FDA-Public Use
  Company Number: US-AUROBINDO-AUR-APL-2019-082488

PATIENT
  Age: 75 Year
  Sex: Female

DRUGS (2)
  1. VALSARTAN TABLETS USP 80MG [Interacting]
     Active Substance: VALSARTAN
     Indication: PRODUCT USED FOR UNKNOWN INDICATION
     Dosage: HANDFUL OF TABLETS
     Route: 048
  2. AMLODIPINE BESYLATE TABLETS 10 MG [Suspect]
     Active Substance: AMLODIPINE BESYLATE
     Indication: PRODUCT USED FOR UNKNOWN INDICATION
     Dosage: HANDFUL OF TABLETS
     Route: 048

REACTIONS (15)
  - Thrombocytopenia [Recovered/Resolved]
  - Pneumonia [Recovered/Resolved]
  - Hyperglycaemia [Recovered/Resolved]
  - Hypotension [Recovered/Resolved]
  - Drug interaction [Recovered/Resolved]
  - Overdose [Recovered/Resolved]
  - Urinary tract infection [Recovered/Resolved]
  - Deep vein thrombosis [Recovered/Resolved]
  - Colitis ischaemic [Recovered/Resolved]
  - Hypocalcaemia [Recovered/Resolved]
  - Tachycardia [Recovered/Resolved]
  - Gastrointestinal haemorrhage [Recovered/Resolved]
  - Suicide attempt [Recovered/Resolved]
  - Intentional overdose [Unknown]
  - Electrocardiogram QT prolonged [Recovered/Resolved]
